FAERS Safety Report 12890645 (Version 2)
Quarter: 2023Q2

REPORT INFORMATION
  Report Type: Report from Study
  Country: US (occurrence: US)
  Receive Date: 20161027
  Receipt Date: 20230518
  Transmission Date: 20230721
  Serious: Yes (Other)
  Sender: FDA-Public Use
  Company Number: US-JAZZ-2016-US-015793

PATIENT
  Sex: Male

DRUGS (10)
  1. XYREM [Suspect]
     Active Substance: SODIUM OXYBATE
     Indication: Narcolepsy
     Dosage: 2.25 GRAM, BID
     Route: 048
     Dates: start: 200810, end: 200810
  2. XYREM [Suspect]
     Active Substance: SODIUM OXYBATE
     Dosage: DOSE ADJUSTMENT
     Route: 048
     Dates: start: 200810, end: 201605
  3. XYREM [Suspect]
     Active Substance: SODIUM OXYBATE
     Dosage: 3 GRAM, BID
     Route: 048
     Dates: start: 201605
  4. CIPRO [Suspect]
     Active Substance: CIPROFLOXACIN HYDROCHLORIDE
     Indication: Shigella infection
  5. KLONOPIN [Concomitant]
     Active Substance: CLONAZEPAM
  6. MIRAPEX [Concomitant]
     Active Substance: PRAMIPEXOLE DIHYDROCHLORIDE
  7. ZETIA [Concomitant]
     Active Substance: EZETIMIBE
  8. ATORVASTATIN [Concomitant]
     Active Substance: ATORVASTATIN
  9. ASPIRIN [Concomitant]
     Active Substance: ASPIRIN
  10. HERBALS\SAW PALMETTO [Concomitant]
     Active Substance: HERBALS\SAW PALMETTO

REACTIONS (6)
  - Shigella infection [Unknown]
  - Renal failure [Unknown]
  - Loss of consciousness [Unknown]
  - Eye swelling [Unknown]
  - Illness [Unknown]
  - Peripheral swelling [Unknown]
